FAERS Safety Report 6708896-5 (Version None)
Quarter: 2010Q2

REPORT INFORMATION
  Report Type: 
  Country: None (occurrence: None)
  Receive Date: 20100428
  Receipt Date: 20100413
  Transmission Date: 20101027
  Serious: Yes (Other)
  Sender: FDA-Public Use
  Company Number: 1-22240961

PATIENT
  Sex: Female

DRUGS (7)
  1. WARFARIN SODIUM [Suspect]
     Indication: AORTIC VALVE REPLACEMENT
     Dosage: 38.5 MG/WEEK (SEE B.5), ORAL
     Route: 048
     Dates: start: 19980101
  2. ETONGESTREL SUBDERMAL IMPLANT [Suspect]
     Indication: CONTRACEPTION
     Dosage: CONTINUOUS, SUBDERMAL
     Route: 059
  3. DOXYCYCLINE [Suspect]
     Indication: PROPHYLAXIS
     Dosage: 100 MG ONCE DAILY, ORAL
     Route: 048
  4. NORETHINDRONE [Suspect]
     Indication: CONTRACEPTION
     Dosage: 0.35 MG ONCE DAILY, ORAL
     Route: 048
  5. FEXOFENADINE HCL AND PSEUDOEPHEDRINE HCL [Concomitant]
  6. CETIRIZINE HCL [Concomitant]
  7. PRENATAL MULTIVITAMIN [Concomitant]

REACTIONS (4)
  - DRUG INTERACTION [None]
  - INTERNATIONAL NORMALISED RATIO DECREASED [None]
  - INTERNATIONAL NORMALISED RATIO INCREASED [None]
  - MENORRHAGIA [None]
